FAERS Safety Report 18457087 (Version 1)
Quarter: 2020Q4

REPORT INFORMATION
  Report Type: Spontaneous
  Country: US (occurrence: US)
  Receive Date: 20201102
  Receipt Date: 20201102
  Transmission Date: 20210114
  Serious: Yes (Other)
  Sender: FDA-Public Use
  Company Number: None

PATIENT
  Age: 48 Year
  Sex: Male
  Weight: 85.5 kg

DRUGS (2)
  1. TERBINAFINE 250 MG TABLETS, MFG AUTOBINDO [Suspect]
     Active Substance: TERBINAFINE
     Indication: FUNGAL SKIN INFECTION
     Dosage: ?          OTHER FREQUENCY:1 A DAY WITH FOOD;?
     Route: 048
     Dates: start: 20201020, end: 20201023
  2. VITAMIN D3 [Concomitant]
     Active Substance: CHOLECALCIFEROL

REACTIONS (6)
  - Flatulence [None]
  - Abdominal distension [None]
  - Vomiting [None]
  - Dehydration [None]
  - Dyspepsia [None]
  - Eructation [None]

NARRATIVE: CASE EVENT DATE: 20201023
